FAERS Safety Report 9155630 (Version 4)
Quarter: 2013Q4

REPORT INFORMATION
  Report Type: Report from Study
  Country: DE (occurrence: DE)
  Receive Date: 20130311
  Receipt Date: 20131106
  Transmission Date: 20140711
  Serious: Yes (Other)
  Sender: FDA-Public Use
  Company Number: DE-BAYER-2013-030183

PATIENT
  Sex: Female
  Weight: 90 kg

DRUGS (1)
  1. EXTAVIA [Suspect]
     Indication: MULTIPLE SCLEROSIS
     Dosage: 250 ?G/ML, UNK
     Route: 058
     Dates: start: 20120321

REACTIONS (6)
  - Multiple sclerosis relapse [Recovered/Resolved]
  - Expanded disability status scale score increased [Recovered/Resolved]
  - Hypoaesthesia [Recovered/Resolved]
  - Demyelination [Recovered/Resolved]
  - Palpitations [None]
  - General physical health deterioration [None]
